FAERS Safety Report 23623707 (Version 1)
Quarter: 2024Q1

REPORT INFORMATION
  Report Type: Spontaneous
  Country: CN (occurrence: CN)
  Receive Date: 20240312
  Receipt Date: 20240312
  Transmission Date: 20240410
  Serious: Yes (Other)
  Sender: FDA-Public Use
  Company Number: CN-AMGEN-CHNSP2024047448

PATIENT
  Age: 64 Year
  Sex: Female
  Weight: 49.8 kg

DRUGS (2)
  1. BLINATUMOMAB [Suspect]
     Active Substance: BLINATUMOMAB
     Indication: B precursor type acute leukaemia
     Dosage: 9 MICROGRAM, QD, DRIP, CONTINUED, INTRAVENOUS GLUCOSE TOLERANCE TEST (IVGTT)
     Route: 042
     Dates: start: 20240130, end: 20240205
  2. SODIUM CHLORIDE [Concomitant]
     Active Substance: SODIUM CHLORIDE
     Dosage: 270 MILLILITER, DRIP
     Route: 042
     Dates: start: 20240130, end: 20240205

REACTIONS (4)
  - Hyperpyrexia [Recovering/Resolving]
  - Oxygen saturation decreased [Recovering/Resolving]
  - Chills [Recovering/Resolving]
  - Dyspnoea [Recovering/Resolving]

NARRATIVE: CASE EVENT DATE: 20240130
